FAERS Safety Report 22332531 (Version 1)
Quarter: 2023Q2

REPORT INFORMATION
  Report Type: Spontaneous
  Country: US (occurrence: None)
  Receive Date: 20230516
  Receipt Date: 20230516
  Transmission Date: 20230722
  Serious: No
  Sender: FDA-Public Use
  Company Number: None

PATIENT
  Sex: Female

DRUGS (1)
  1. CAPECITABINE [Suspect]
     Active Substance: CAPECITABINE
     Dosage: FREQUENCY : AS DIRECTED;?
     Route: 048
     Dates: start: 20220916

REACTIONS (4)
  - Palmar-plantar erythrodysaesthesia syndrome [None]
  - Drug ineffective [None]
  - Disease progression [None]
  - Pulmonary hypertension [None]
